FAERS Safety Report 24534049 (Version 1)
Quarter: 2024Q4

REPORT INFORMATION
  Report Type: Spontaneous
  Country: US (occurrence: None)
  Receive Date: 20241021
  Receipt Date: 20241021
  Transmission Date: 20250114
  Serious: No
  Sender: Public
  Company Number: None

PATIENT
  Sex: 0

DRUGS (1)
  1. QVAR [Suspect]
     Active Substance: BECLOMETHASONE DIPROPIONATE

REACTIONS (6)
  - Muscle spasms [None]
  - Muscle spasms [None]
  - Nasal congestion [None]
  - Chest discomfort [None]
  - Fatigue [None]
  - Dyspnoea [None]
